FAERS Safety Report 5722881-1 (Version None)
Quarter: 2008Q2

REPORT INFORMATION
  Report Type: 
  Country: None (occurrence: None)
  Receive Date: 20080425
  Receipt Date: 20080414
  Transmission Date: 20081010
  Serious: No
  Sender: FDA-Public Use
  Company Number: 2008S1006134

PATIENT
  Age: 46 Year
  Sex: Female
  Weight: 56.6996 kg

DRUGS (4)
  1. FENTANYL TRANSDERMAL SYSTEM [Suspect]
     Indication: NECK PAIN
     Dosage: 25 UG;EVERY HOUR;TRANSDERMAL
     Route: 062
     Dates: start: 20050101, end: 20080228
  2. FENTANYL TRANSDERMAL SYSTEM [Suspect]
     Indication: MUSCULOSKELETAL PAIN
     Dosage: 25 UG, EVERY HOUR; TRANSDERMAL
     Route: 062
     Dates: start: 20050301, end: 20080321
  3. CYMBALTA [Concomitant]
  4. TOPAMAX [Concomitant]

REACTIONS (6)
  - ABDOMINAL PAIN UPPER [None]
  - ANXIETY [None]
  - DISTURBANCE IN ATTENTION [None]
  - DRUG WITHDRAWAL SYNDROME [None]
  - INSOMNIA [None]
  - RESTLESSNESS [None]
